FAERS Safety Report 10746341 (Version 2)
Quarter: 2015Q1

REPORT INFORMATION
  Report Type: Spontaneous
  Country: BR (occurrence: BR)
  Receive Date: 20150128
  Receipt Date: 20150225
  Transmission Date: 20150721
  Serious: Yes (Hospitalization)
  Sender: FDA-Public Use
  Company Number: BR-PFIZER INC-2015029256

PATIENT
  Age: 65 Year
  Sex: Male
  Weight: 72 kg

DRUGS (13)
  1. LIPITOR [Suspect]
     Active Substance: ATORVASTATIN CALCIUM
     Indication: CARDIAC DISORDER
     Dosage: 40 MG, DAILY
     Dates: start: 201202
  2. MERITOR [Concomitant]
     Active Substance: GLIMEPIRIDE\METFORMIN
     Indication: DIABETES MELLITUS
     Dosage: 1 DF, DAILY
     Dates: start: 2012
  3. LIMBITROL [Concomitant]
     Active Substance: AMITRIPTYLINE\CHLORDIAZEPOXIDE
     Indication: RELAXATION THERAPY
     Dosage: 1 DF, DAILY
     Dates: start: 2012
  4. ONBRIZE [Concomitant]
     Active Substance: INDACATEROL MALEATE
     Indication: PNEUMONIA
     Dosage: 150 MG, UNK
     Route: 055
     Dates: start: 201410
  5. VASTAREL MR [Concomitant]
     Indication: CARDIAC DISORDER
     Dosage: 1 DF, 2X/DAY
     Dates: start: 2012
  6. COVERSYL [Concomitant]
     Active Substance: PERINDOPRIL
     Indication: CARDIAC DISORDER
     Dosage: 4 MG, DAILY
     Dates: start: 2012
  7. PANTOZOL [Concomitant]
     Active Substance: PANTOPRAZOLE SODIUM
     Indication: GASTRITIS
     Dosage: 40 MG, 2X/DAY
     Dates: start: 2012
  8. XARELTO [Concomitant]
     Active Substance: RIVAROXABAN
     Indication: BLOOD DISORDER
     Dosage: 15 MG, DAILY
     Dates: start: 201202
  9. PURAN [Concomitant]
     Active Substance: LEVOTHYROXINE SODIUM
     Indication: THYROID DISORDER
     Dosage: 1 DF, DAILY
     Dates: start: 2012
  10. ALDACTONE [Concomitant]
     Active Substance: SPIRONOLACTONE
     Indication: FATIGUE
     Dosage: 25 MG, DAILY
     Dates: start: 201202
  11. CEBRALAT [Concomitant]
     Active Substance: CILOSTAZOL
     Indication: VENOUS OCCLUSION
     Dosage: 100 MG, 2X/DAY
     Dates: start: 2012
  12. CONCOR [Concomitant]
     Active Substance: BISOPROLOL FUMARATE
     Indication: CARDIAC DISORDER
     Dosage: 10 MG, DAILY
     Dates: start: 2012
  13. LASIX [Concomitant]
     Active Substance: FUROSEMIDE
     Indication: PULMONARY OEDEMA
     Dosage: 40 MG, DAILY
     Dates: start: 201409

REACTIONS (4)
  - Hypoaesthesia [Unknown]
  - Pulmonary oedema [Unknown]
  - Muscle spasms [Unknown]
  - Fatigue [Unknown]

NARRATIVE: CASE EVENT DATE: 201410
